FAERS Safety Report 21639153 (Version 1)
Quarter: 2022Q4

REPORT INFORMATION
  Report Type: Report from Study
  Country: US (occurrence: US)
  Receive Date: 20221124
  Receipt Date: 20221124
  Transmission Date: 20230112
  Serious: No
  Sender: FDA-Public Use
  Company Number: US-ABBVIE-4175488

PATIENT
  Sex: Female

DRUGS (15)
  1. SKYRIZI [Suspect]
     Active Substance: RISANKIZUMAB-RZAA
     Indication: Psoriatic arthropathy
     Route: 058
     Dates: start: 2022
  2. SKYRIZI [Suspect]
     Active Substance: RISANKIZUMAB-RZAA
     Route: 058
     Dates: start: 20220725
  3. XYZAL 5 MG TABLET [Concomitant]
     Indication: Product used for unknown indication
     Route: 048
  4. METAMUCIL 0.4 G CAPSULE [Concomitant]
     Indication: Product used for unknown indication
     Route: 048
  5. DOXEPIN HCL 100 MG CAPSULE [Concomitant]
     Indication: Product used for unknown indication
     Route: 048
  6. FIBER-LAX 625 MG TABLET [Concomitant]
     Indication: Product used for unknown indication
     Route: 048
  7. VITAMIN D-400 10 MCG TABLET [Concomitant]
     Indication: Product used for unknown indication
     Route: 048
  8. BIOTIN 10 MG TABLET [Concomitant]
     Indication: Product used for unknown indication
     Route: 048
  9. UNISOM 50 MG CAPSULE [Concomitant]
     Indication: Product used for unknown indication
     Route: 048
  10. EPIPEN JR 0.15MG/0.3 AUTO INJCT [Concomitant]
     Indication: Product used for unknown indication
  11. ALLEGRA D-12 HOUR [Concomitant]
     Active Substance: FEXOFENADINE HYDROCHLORIDE\PSEUDOEPHEDRINE HYDROCHLORIDE
     Indication: Product used for unknown indication
  12. HYDROXYZINE HYDROCHLORIDE [Concomitant]
     Active Substance: HYDROXYZINE HYDROCHLORIDE
     Indication: Product used for unknown indication
     Route: 048
  13. ZYRTEC [Concomitant]
     Active Substance: CETIRIZINE HYDROCHLORIDE
     Indication: Product used for unknown indication
     Route: 048
  14. METOPROLOL SUCCINATE [Concomitant]
     Active Substance: METOPROLOL SUCCINATE
     Indication: Product used for unknown indication
  15. CLARITIN-D 12 HOUR [Concomitant]
     Active Substance: LORATADINE\PSEUDOEPHEDRINE SULFATE
     Indication: Product used for unknown indication

REACTIONS (1)
  - Headache [Unknown]

NARRATIVE: CASE EVENT DATE: 20220101
